FAERS Safety Report 9127198 (Version 4)
Quarter: 2013Q2

REPORT INFORMATION
  Report Type: Report from Study
  Country: US (occurrence: US)
  Receive Date: 20130228
  Receipt Date: 20130424
  Transmission Date: 20140414
  Serious: Yes (Hospitalization)
  Sender: FDA-Public Use
  Company Number: US-JNJFOC-20130211743

PATIENT
  Age: 56 Year
  Sex: Female
  Weight: 77.57 kg

DRUGS (12)
  1. REMICADE [Suspect]
     Indication: CROHN^S DISEASE
     Route: 042
     Dates: start: 201005, end: 201211
  2. LORATADINE [Concomitant]
     Indication: MULTIPLE ALLERGIES
     Route: 065
  3. COZAAR [Concomitant]
     Indication: HYPERTENSION
     Route: 065
  4. CLARITIN [Concomitant]
     Route: 065
  5. PENTASA [Concomitant]
     Indication: CROHN^S DISEASE
     Route: 065
  6. METHSCOPOLAMINE BROMIDE [Concomitant]
     Indication: CROHN^S DISEASE
     Route: 065
  7. METHSCOPOLAMINE BROMIDE [Concomitant]
     Indication: MUSCLE SPASMS
     Route: 065
  8. ROBAXIN [Concomitant]
     Route: 065
  9. ULTRAM [Concomitant]
     Indication: ARTHRITIS
     Route: 065
  10. SYMBICORT [Concomitant]
     Indication: ASTHMA
     Route: 065
  11. ASTEPRO NASAL SPRAY [Concomitant]
     Indication: MULTIPLE ALLERGIES
     Route: 065
  12. SIMVASTATIN [Concomitant]
     Indication: BLOOD CHOLESTEROL
     Route: 065
     Dates: end: 20121206

REACTIONS (6)
  - Platelet count decreased [Unknown]
  - Histoplasmosis disseminated [Recovering/Resolving]
  - Immune system disorder [Unknown]
  - Nasopharyngitis [Not Recovered/Not Resolved]
  - Headache [Recovered/Resolved]
  - Pyrexia [Unknown]
